FAERS Safety Report 20890108 (Version 1)
Quarter: 2022Q2

REPORT INFORMATION
  Report Type: Spontaneous
  Country: US (occurrence: US)
  Receive Date: 20220530
  Receipt Date: 20220530
  Transmission Date: 20220720
  Serious: No
  Sender: FDA-Public Use
  Company Number: US-009507513-2205USA005620

PATIENT
  Sex: Female

DRUGS (2)
  1. KEYTRUDA [Suspect]
     Active Substance: PEMBROLIZUMAB
     Indication: Triple negative breast cancer
     Dosage: 200 MILLIGRAM, EVERY 3 WEEKS (Q3W)
     Route: 042
     Dates: start: 202202
  2. KEYTRUDA [Suspect]
     Active Substance: PEMBROLIZUMAB
     Dosage: UNK
     Dates: start: 20220517, end: 20220517

REACTIONS (1)
  - Paraesthesia [Unknown]

NARRATIVE: CASE EVENT DATE: 20220101
